FAERS Safety Report 7674546-7 (Version None)
Quarter: 2011Q3

REPORT INFORMATION
  Report Type: 
  Country: None (occurrence: None)
  Receive Date: 20110810
  Receipt Date: 20110803
  Transmission Date: 20111222
  Serious: Yes (Death, Other)
  Sender: FDA-Public Use
  Company Number: JP-ROCHE-786616

PATIENT
  Sex: Male
  Weight: 54 kg

DRUGS (3)
  1. TOPOTECAN [Concomitant]
     Route: 042
     Dates: start: 20110214, end: 20110218
  2. AVASTIN [Suspect]
     Indication: COLON CANCER RECURRENT
     Route: 041
     Dates: start: 20110214, end: 20110228
  3. TS-1 [Concomitant]
     Route: 048
     Dates: start: 20110214, end: 20110218

REACTIONS (4)
  - LARGE INTESTINE PERFORATION [None]
  - ANASTOMOTIC ULCER [None]
  - DISEASE PROGRESSION [None]
  - MELAENA [None]
